FAERS Safety Report 8621669-1 (Version None)
Quarter: 2012Q3

REPORT INFORMATION
  Report Type: 
  Country: None (occurrence: None)
  Receive Date: 20120821
  Receipt Date: 20120821
  Transmission Date: 20120928
  Serious: No
  Sender: FDA-Public Use
  Company Number: None

PATIENT
  Age: 57 Year
  Sex: Male
  Weight: 101.1521 kg

DRUGS (1)
  1. INFED [Suspect]
     Indication: IRON DEFICIENCY ANAEMIA
     Dosage: 1 GRAM ONCE IV BOLUS
     Route: 040
     Dates: start: 20120817, end: 20120817

REACTIONS (4)
  - FEELING HOT [None]
  - BACK PAIN [None]
  - MUSCLE SPASMS [None]
  - COUGH [None]
